FAERS Safety Report 5258437-7 (Version None)
Quarter: 2007Q1

REPORT INFORMATION
  Report Type: 
  Country: None (occurrence: None)
  Receive Date: 20070308
  Receipt Date: 20070228
  Transmission Date: 20070707
  Serious: Yes (Hospitalization)
  Sender: FDA-Public Use
  Company Number: ES-JNJFOC-20070203435

PATIENT
  Age: 40 Year
  Sex: Male

DRUGS (4)
  1. ACETAMINOPHEN [Suspect]
  2. ACETAMINOPHEN [Suspect]
     Indication: INFLUENZA LIKE ILLNESS
  3. IBUPROFEN [Suspect]
     Indication: INFLUENZA LIKE ILLNESS
  4. VALERIAN [Suspect]
     Indication: INFLUENZA LIKE ILLNESS

REACTIONS (4)
  - CYTOMEGALOVIRUS TEST POSITIVE [None]
  - DRUG INTERACTION [None]
  - EPSTEIN-BARR VIRUS INFECTION [None]
  - HEPATITIS CHOLESTATIC [None]
